FAERS Safety Report 18681363 (Version 4)
Quarter: 2025Q2

REPORT INFORMATION
  Report Type: Report from Study
  Country: CA (occurrence: CA)
  Receive Date: 20201229
  Receipt Date: 20250424
  Transmission Date: 20250717
  Serious: Yes (Hospitalization, Other)
  Sender: TAKEDA
  Company Number: CA-TAKEDA-2020TUS060472

PATIENT
  Sex: Male

DRUGS (11)
  1. VEDOLIZUMAB [Suspect]
     Active Substance: VEDOLIZUMAB
     Indication: Colitis ulcerative
  2. VEDOLIZUMAB [Suspect]
     Active Substance: VEDOLIZUMAB
  3. VEDOLIZUMAB [Suspect]
     Active Substance: VEDOLIZUMAB
  4. VEDOLIZUMAB [Suspect]
     Active Substance: VEDOLIZUMAB
  5. PREDNISONE [Concomitant]
     Active Substance: PREDNISONE
  6. MESALAMINE [Concomitant]
     Active Substance: MESALAMINE
  7. IMURAN [Concomitant]
     Active Substance: AZATHIOPRINE
  8. WARFARIN [Concomitant]
     Active Substance: WARFARIN
  9. PERINDOPRIL [Concomitant]
     Active Substance: PERINDOPRIL
  10. SOTALOL [Concomitant]
     Active Substance: SOTALOL
  11. METFORMIN [Concomitant]
     Active Substance: METFORMIN HYDROCHLORIDE

REACTIONS (5)
  - Atrial fibrillation [Unknown]
  - Arrhythmia [Unknown]
  - Tachycardia [Unknown]
  - Dyspnoea [Unknown]
  - Blood pressure increased [Unknown]
